FAERS Safety Report 24551515 (Version 1)
Quarter: 2024Q4

REPORT INFORMATION
  Report Type: Spontaneous
  Country: CA (occurrence: CA)
  Receive Date: 20241026
  Receipt Date: 20241026
  Transmission Date: 20250114
  Serious: Yes (Hospitalization)
  Sender: AUROBINDO
  Company Number: CA-AUROBINDO-AUR-APL-2024-051137

PATIENT
  Sex: Male

DRUGS (10)
  1. ARIPIPRAZOLE [Suspect]
     Active Substance: ARIPIPRAZOLE
     Indication: Substance use disorder
     Dosage: 400 MILLIGRAM
     Route: 030
  2. ARIPIPRAZOLE [Suspect]
     Active Substance: ARIPIPRAZOLE
     Indication: Schizophrenia
  3. LURASIDONE [Suspect]
     Active Substance: LURASIDONE
     Indication: Substance use disorder
     Dosage: 100 MILLIGRAM, ONCE A DAY
     Route: 048
  4. LURASIDONE [Suspect]
     Active Substance: LURASIDONE
     Indication: Schizophrenia
  5. ZUCLOPENTHIXOL [Suspect]
     Active Substance: ZUCLOPENTHIXOL
     Indication: Substance use disorder
     Dosage: 150 MILLIGRAM
     Route: 065
  6. ZUCLOPENTHIXOL [Suspect]
     Active Substance: ZUCLOPENTHIXOL
     Indication: Schizophrenia
     Dosage: 200 MILLIGRAM
     Route: 065
  7. PALIPERIDONE [Suspect]
     Active Substance: PALIPERIDONE
     Indication: Substance use disorder
     Dosage: 150 MILLIGRAM
     Route: 065
  8. PALIPERIDONE [Suspect]
     Active Substance: PALIPERIDONE
     Indication: Schizophrenia
  9. ARIPIPRAZOLE [Suspect]
     Active Substance: ARIPIPRAZOLE
     Indication: Substance use disorder
     Dosage: UNK
     Route: 065
  10. ARIPIPRAZOLE [Suspect]
     Active Substance: ARIPIPRAZOLE
     Indication: Schizophrenia

REACTIONS (3)
  - Extrapyramidal disorder [Unknown]
  - Product use in unapproved indication [Unknown]
  - Drug ineffective [Unknown]
